FAERS Safety Report 7994686-2 (Version None)
Quarter: 2011Q4

REPORT INFORMATION
  Report Type: 
  Country: None (occurrence: None)
  Receive Date: 20111220
  Receipt Date: 20111216
  Transmission Date: 20120403
  Serious: Yes (Death, Other)
  Sender: FDA-Public Use
  Company Number: US-PFIZER INC-2006076863

PATIENT
  Sex: Female

DRUGS (10)
  1. METOCLOPRAMIDE [Suspect]
     Dosage: UNK
  2. MEPROBAMATE [Suspect]
     Dosage: UNK
  3. DOXEPIN HCL [Suspect]
     Dosage: UNK
  4. ETHANOL [Concomitant]
     Dosage: UNK
  5. NEURONTIN [Suspect]
     Dosage: INCREASED TO 400 MG SIX TIMES DAILY
     Route: 048
     Dates: start: 20020624
  6. NEURONTIN [Suspect]
     Indication: PAIN
     Dosage: UNK
     Dates: start: 20000807
  7. DIPHENHYDRAMINE HCL [Suspect]
     Dosage: UNK
  8. MIRTAZAPINE [Suspect]
     Dosage: UNK
  9. TOPIRAMATE [Concomitant]
     Dosage: UNK
  10. NEURONTIN [Suspect]
     Dosage: 600 MG, 3X/DAY
     Dates: start: 20020923

REACTIONS (3)
  - GUN SHOT WOUND [None]
  - COMPLETED SUICIDE [None]
  - DRUG INEFFECTIVE [None]
